FAERS Safety Report 5705119-0 (Version None)
Quarter: 2008Q2

REPORT INFORMATION
  Report Type: 
  Country: None (occurrence: None)
  Receive Date: 20080410
  Receipt Date: 20080328
  Transmission Date: 20081010
  Serious: Yes (Other)
  Sender: FDA-Public Use
  Company Number: 025564

PATIENT
  Sex: Male
  Weight: 35.4 kg

DRUGS (3)
  1. ADDERALL 10 [Suspect]
     Indication: ATTENTION DEFICIT/HYPERACTIVITY DISORDER
     Dosage: 5 MG, QD, ORAL
     Route: 048
     Dates: start: 20030101, end: 20071201
  2. ADDERALL XR (DEXAMFETAMINE SULFATE, DEXAMFETAMINE SACCHARATE, AMFETAMI [Suspect]
     Indication: ATTENTION DEFICIT/HYPERACTIVITY DISORDER
     Dosage: 25 MG, QD, ORAL
     Route: 048
     Dates: start: 20030101, end: 20071201
  3. VYVANSE [Suspect]
     Indication: ATTENTION DEFICIT/HYPERACTIVITY DISORDER
     Dosage: 50 MG, QD, ORAL
     Route: 048
     Dates: start: 20071201, end: 20071201

REACTIONS (2)
  - INSOMNIA [None]
  - VENTRICULAR EXTRASYSTOLES [None]
